FAERS Safety Report 6105575-2 (Version None)
Quarter: 2009Q1

REPORT INFORMATION
  Report Type: 
  Country: None (occurrence: None)
  Receive Date: 20090304
  Receipt Date: 20090304
  Transmission Date: 20090719
  Serious: Yes (Other)
  Sender: FDA-Public Use
  Company Number: None

PATIENT
  Age: 38 Year
  Sex: Female
  Weight: 71.6683 kg

DRUGS (2)
  1. MONONESSA 28S WATSON [Suspect]
     Indication: CONTRACEPTION
     Dosage: 28S DAILY PO
     Route: 048
     Dates: start: 20071120, end: 20090302
  2. MONONESSA 28S WATSON [Suspect]
     Indication: OVARIAN CYST RUPTURED
     Dosage: 28S DAILY PO
     Route: 048
     Dates: start: 20071120, end: 20090302

REACTIONS (10)
  - DEPRESSION [None]
  - DIZZINESS [None]
  - EMOTIONAL DISORDER [None]
  - FATIGUE [None]
  - FEELING ABNORMAL [None]
  - HEADACHE [None]
  - IRRITABILITY [None]
  - PAIN IN EXTREMITY [None]
  - TEARFULNESS [None]
  - WEIGHT INCREASED [None]
